FAERS Safety Report 9774464 (Version 1)
Quarter: 2013Q4

REPORT INFORMATION
  Report Type: Spontaneous
  Country: FR (occurrence: FR)
  Receive Date: 20131220
  Receipt Date: 20131220
  Transmission Date: 20140711
  Serious: Yes (Other)
  Sender: FDA-Public Use
  Company Number: FR-VERTEX PHARMACEUTICALS INC-2013-011908

PATIENT
  Sex: 0

DRUGS (4)
  1. INCIVO [Suspect]
     Indication: HEPATITIS C
     Route: 065
  2. BOCEPREVIR [Suspect]
     Indication: HEPATITIS C
     Route: 065
  3. RIBAVIRIN [Suspect]
     Indication: HEPATITIS C
     Route: 065
  4. PEG INTERFERON [Suspect]
     Indication: HEPATITIS C
     Route: 065

REACTIONS (5)
  - Virologic failure [Unknown]
  - Toxicity to various agents [Unknown]
  - Rash [Unknown]
  - Anaemia [Unknown]
  - Off label use [Unknown]
